FAERS Safety Report 17242430 (Version 1)
Quarter: 2020Q1

REPORT INFORMATION
  Report Type: Spontaneous
  Country: US (occurrence: US)
  Receive Date: 20200107
  Receipt Date: 20200107
  Transmission Date: 20200409
  Serious: Yes (Other)
  Sender: FDA-Public Use
  Company Number: US-AMNEAL PHARMACEUTICALS-2019-AMRX-02998

PATIENT
  Age: 3 Month
  Sex: Male

DRUGS (4)
  1. VIGABATRIN. [Suspect]
     Active Substance: VIGABATRIN
     Indication: EPILEPSY
     Dosage: 3.5 MILLILITER, BID (175 MG) FOR 3 DAYS
     Route: 048
     Dates: start: 20191112, end: 2019
  2. VIGABATRIN. [Suspect]
     Active Substance: VIGABATRIN
     Dosage: 750 MILLILITER, BID
     Route: 065
     Dates: start: 20191125
  3. VIGABATRIN. [Suspect]
     Active Substance: VIGABATRIN
     Dosage: 7 MILLILITER, BID (350 MG) FOR 3 DAYS
     Route: 048
     Dates: start: 2019, end: 2019
  4. VIGABATRIN. [Suspect]
     Active Substance: VIGABATRIN
     Dosage: 10 MILLILITER, BID (500 MG)
     Route: 048
     Dates: start: 2019

REACTIONS (3)
  - Product use complaint [Unknown]
  - Wrong technique in product usage process [Unknown]
  - Drug ineffective [Not Recovered/Not Resolved]

NARRATIVE: CASE EVENT DATE: 201911
